FAERS Safety Report 7409215-1 (Version None)
Quarter: 2011Q2

REPORT INFORMATION
  Report Type: 
  Country: None (occurrence: None)
  Receive Date: 20110412
  Receipt Date: 20110407
  Transmission Date: 20111010
  Serious: Yes (Hospitalization)
  Sender: FDA-Public Use
  Company Number: A0748268A

PATIENT
  Age: 46 Year
  Sex: Male
  Weight: 93.2 kg

DRUGS (7)
  1. METFORMIN [Concomitant]
  2. AVANDIA [Suspect]
     Indication: DIABETES MELLITUS
     Dosage: 8MG TWICE PER DAY
     Route: 048
     Dates: start: 19990101, end: 20050801
  3. LISINOPRIL [Concomitant]
  4. BUPROPION HYDROCHLORIDE [Concomitant]
  5. NEURONTIN [Concomitant]
  6. GLUCOTROL XL [Concomitant]
  7. METOPROLOL TARTRATE [Concomitant]

REACTIONS (2)
  - MYOCARDIAL INFARCTION [None]
  - PULMONARY EMBOLISM [None]
